FAERS Safety Report 20697010 (Version 1)
Quarter: 2022Q2

REPORT INFORMATION
  Report Type: Spontaneous
  Country: US (occurrence: US)
  Receive Date: 20220411
  Receipt Date: 20220411
  Transmission Date: 20220721
  Serious: Yes (Death, Hospitalization)
  Sender: FDA-Public Use
  Company Number: US-HQ SPECIALTY-US-2022INT000100

PATIENT
  Age: 28 Year
  Sex: Female

DRUGS (7)
  1. CISPLATIN [Suspect]
     Active Substance: CISPLATIN
     Indication: Non-renal cell carcinoma of kidney
     Dosage: 70 MG/M2, REGIMEN A, DAY 1
     Route: 065
  2. DOXORUBICIN [Suspect]
     Active Substance: DOXORUBICIN
     Indication: Non-renal cell carcinoma of kidney
     Dosage: 30 MG/M2, REGIMEN A, DAY 1
     Route: 065
  3. BORTEZOMIB [Suspect]
     Active Substance: BORTEZOMIB
     Indication: Non-renal cell carcinoma of kidney
     Dosage: 1.8 MG/M2, REGIMEN A, DAY 1, 4, 8
     Route: 065
  4. CARBOPLATIN [Suspect]
     Active Substance: CARBOPLATIN
     Indication: Non-renal cell carcinoma of kidney
     Dosage: 400 MG/M2, REGIMEN B, DAY 1
     Route: 065
  5. PACLITAXEL [Suspect]
     Active Substance: PACLITAXEL
     Indication: Non-renal cell carcinoma of kidney
     Dosage: 80 MG/M2, REGIMEN B, DAY  1, 8, 15
     Route: 065
  6. GEMCITABINE [Suspect]
     Active Substance: GEMCITABINE
     Indication: Non-renal cell carcinoma of kidney
     Dosage: 1000 MG/M2, DAY 1, 8, 15, REGIMEN B
  7. EVEROLIMUS [Concomitant]
     Active Substance: EVEROLIMUS
     Indication: Non-renal cell carcinoma of kidney
     Dosage: 10 MG, QD FOR 3 MONTHS
     Route: 065

REACTIONS (4)
  - Metastatic neoplasm [Fatal]
  - Pseudomonal sepsis [Recovered/Resolved]
  - Tumour lysis syndrome [Recovered/Resolved]
  - Cardiac failure [Unknown]
